FAERS Safety Report 6401552-2 (Version None)
Quarter: 2009Q4

REPORT INFORMATION
  Report Type: 
  Country: None (occurrence: None)
  Receive Date: 20091015
  Receipt Date: 20091007
  Transmission Date: 20100525
  Serious: Yes (Hospitalization)
  Sender: FDA-Public Use
  Company Number: FR-BAXTER-2009BH015750

PATIENT
  Age: 50 Year
  Sex: Male

DRUGS (2)
  1. DIANEAL [Suspect]
     Indication: PERITONEAL DIALYSIS
     Route: 033
     Dates: start: 20090601
  2. DIANEAL [Suspect]

REACTIONS (5)
  - ANXIETY [None]
  - ARTHRALGIA [None]
  - MUSCULOSKELETAL PAIN [None]
  - PERITONEAL DIALYSIS COMPLICATION [None]
  - PNEUMOPERITONEUM [None]
